FAERS Safety Report 8773711 (Version 1)
Quarter: 2012Q4

REPORT INFORMATION
  Report Type: 
  Country: DE (occurrence: DE)
  Receive Date: 20120907
  Receipt Date: 20120907
  Transmission Date: 20130627
  Serious: Yes (Hospitalization)
  Sender: FDA-Public Use
  Company Number: DE-MYLANLABS-2012S1017899

PATIENT
  Age: 51 Year
  Sex: Male
  Weight: 85 kg

DRUGS (2)
  1. DOXEPIN [Suspect]
     Indication: PRODUCT USED FOR UNKNOWN INDICATION
     Dosage: Taken an overdose of upto 40 capsules.
     Route: 048
  2. LEXOTANIL [Suspect]
     Indication: PRODUCT USED FOR UNKNOWN INDICATION
     Route: 048

REACTIONS (7)
  - Suicidal behaviour [Unknown]
  - Overdose [Unknown]
  - Convulsion [Unknown]
  - Respiratory failure [Unknown]
  - Hypotension [Unknown]
  - Blood creatine phosphokinase increased [Unknown]
  - Cardiovascular disorder [Unknown]
